FAERS Safety Report 9645526 (Version 1)
Quarter: 2013Q4

REPORT INFORMATION
  Report Type: Spontaneous
  Country: US (occurrence: US)
  Receive Date: 20131025
  Receipt Date: 20131025
  Transmission Date: 20140711
  Serious: No
  Sender: FDA-Public Use
  Company Number: US-MYLANLABS-2013S1005775

PATIENT
  Age: 76 Year
  Sex: Female

DRUGS (1)
  1. WARFARIN SODIUM [Suspect]
     Route: 048
     Dates: end: 2009

REACTIONS (2)
  - Epistaxis [Recovered/Resolved]
  - Haematochezia [Recovered/Resolved]
